FAERS Safety Report 8095071-8 (Version None)
Quarter: 2012Q1

REPORT INFORMATION
  Report Type: 
  Country: None (occurrence: None)
  Receive Date: 20120126
  Receipt Date: 20120112
  Transmission Date: 20120608
  Serious: Yes (Hospitalization)
  Sender: FDA-Public Use
  Company Number: 2012ST000072

PATIENT
  Age: 16 Year
  Sex: Female

DRUGS (5)
  1. PREDNISONE TAB [Suspect]
     Indication: HODGKIN'S DISEASE
  2. CYCLOPHOSPHAMIDE [Suspect]
     Indication: HODGKIN'S DISEASE
  3. MATULANE [Suspect]
     Indication: HODGKIN'S DISEASE
     Dosage: PO
     Route: 048
  4. ADRIAMYCIN /00330901/ (DOXORUBICIN) [Suspect]
     Indication: HODGKIN'S DISEASE
  5. VINCRISTINE [Suspect]
     Indication: HODGKIN'S DISEASE

REACTIONS (1)
  - ACUTE PSYCHOSIS [None]
